FAERS Safety Report 15490444 (Version 3)
Quarter: 2018Q4

REPORT INFORMATION
  Report Type: Spontaneous
  Country: HU (occurrence: HU)
  Receive Date: 20181011
  Receipt Date: 20181023
  Transmission Date: 20190205
  Serious: Yes (Other)
  Sender: FDA-Public Use
  Company Number: PHHY2018HU119208

PATIENT
  Age: 66 Year
  Sex: Female

DRUGS (7)
  1. OXALIPLATIN. [Suspect]
     Active Substance: OXALIPLATIN
     Indication: PANCREATIC NEUROENDOCRINE TUMOUR
     Dosage: UNK
     Route: 065
     Dates: start: 20170628, end: 20170920
  2. SANDOSTATIN LAR DEPOT [Suspect]
     Active Substance: OCTREOTIDE ACETATE
     Dosage: 30 MG, UNK
     Route: 058
     Dates: start: 20171103
  3. AFINITOR [Suspect]
     Active Substance: EVEROLIMUS
     Dosage: 5 MG, QD
     Route: 065
     Dates: start: 20171117
  4. AFINITOR [Suspect]
     Active Substance: EVEROLIMUS
     Indication: METASTASES TO LIVER
     Dosage: 10 MG, QD
     Route: 065
     Dates: start: 20171103
  5. SANDOSTATIN LAR DEPOT [Suspect]
     Active Substance: OCTREOTIDE ACETATE
     Indication: PANCREATIC NEUROENDOCRINE TUMOUR
     Dosage: UNK UNK, QMO
     Route: 058
     Dates: start: 20170628, end: 20170920
  6. 5-FLUOROURACIL [Suspect]
     Active Substance: FLUOROURACIL
     Indication: PANCREATIC NEUROENDOCRINE TUMOUR
     Dosage: UNK
     Route: 065
     Dates: start: 20170628, end: 20170920
  7. LEUCOVORIN. [Concomitant]
     Active Substance: LEUCOVORIN
     Indication: GASTROENTEROPANCREATIC NEUROENDOCRINE TUMOUR DISEASE
     Dosage: UNK
     Route: 065
     Dates: start: 20170628, end: 20170920

REACTIONS (6)
  - Stomatitis [Recovered/Resolved]
  - Oedema peripheral [Unknown]
  - Diarrhoea [Recovered/Resolved]
  - Metastases to liver [Recovering/Resolving]
  - Arthralgia [Unknown]
  - Malignant neoplasm progression [Recovering/Resolving]

NARRATIVE: CASE EVENT DATE: 20171117
